FAERS Safety Report 15152610 (Version 2)
Quarter: 2018Q3

REPORT INFORMATION
  Report Type: Report from Study
  Country: NL (occurrence: NL)
  Receive Date: 20180717
  Receipt Date: 20180719
  Transmission Date: 20181010
  Serious: Yes (Disabling, Other)
  Sender: FDA-Public Use
  Company Number: NL-AMGEN-NLDSL2018079955

PATIENT
  Age: 58 Year
  Sex: Male

DRUGS (3)
  1. COLCHICINE. [Concomitant]
     Active Substance: COLCHICINE
     Dosage: UNK
     Dates: start: 20170601
  2. ALLOPURINOL. [Concomitant]
     Active Substance: ALLOPURINOL
     Dosage: UNK
     Dates: start: 20170601
  3. REPATHA [Suspect]
     Active Substance: EVOLOCUMAB
     Indication: HYPERCHOLESTEROLAEMIA
     Dosage: 140 MG/ML, Q2WK
     Route: 058
     Dates: start: 20170623

REACTIONS (2)
  - Gait disturbance [Not Recovered/Not Resolved]
  - Arthralgia [Not Recovered/Not Resolved]
